FAERS Safety Report 6650718-5 (Version None)
Quarter: 2010Q1

REPORT INFORMATION
  Report Type: 
  Country: None (occurrence: None)
  Receive Date: 20100325
  Receipt Date: 20100312
  Transmission Date: 20100710
  Serious: Yes (Other)
  Sender: FDA-Public Use
  Company Number: US-BIOGENIDEC-2010BI008866

PATIENT
  Sex: Female

DRUGS (1)
  1. AVONEX [Suspect]
     Indication: MULTIPLE SCLEROSIS
     Route: 030
     Dates: start: 20061217, end: 20070323

REACTIONS (4)
  - DRY EYE [None]
  - HEPATITIS [None]
  - LABORATORY TEST ABNORMAL [None]
  - MUSCLE SPASMS [None]
